FAERS Safety Report 7395658-1 (Version None)
Quarter: 2011Q2

REPORT INFORMATION
  Report Type: 
  Country: None (occurrence: None)
  Receive Date: 20110405
  Receipt Date: 20110329
  Transmission Date: 20111010
  Serious: Yes (Hospitalization)
  Sender: FDA-Public Use
  Company Number: US-TEVA-273671USA

PATIENT
  Sex: Male
  Weight: 102.51 kg

DRUGS (4)
  1. DALTEPARIN SODIUM [Suspect]
     Indication: PULMONARY EMBOLISM
     Route: 058
     Dates: start: 20100909, end: 20110201
  2. IRINOTECAN HYDROCHLORIDE [Suspect]
     Indication: RECTAL CANCER METASTATIC
     Route: 042
  3. FLUOROURACIL [Suspect]
     Indication: RECTAL CANCER METASTATIC
     Route: 042
  4. FOLINIC ACID [Suspect]
     Indication: RECTAL CANCER METASTATIC
     Route: 042

REACTIONS (1)
  - SEPSIS [None]
